FAERS Safety Report 5107631-4 (Version None)
Quarter: 2006Q3

REPORT INFORMATION
  Report Type: 
  Country: None (occurrence: None)
  Receive Date: 20060914
  Receipt Date: 20060901
  Transmission Date: 20061208
  Serious: Yes (Life-Threatening, Hospitalization)
  Sender: FDA-Public Use
  Company Number: 2006-04804

PATIENT
  Age: 50 Year
  Sex: Male

DRUGS (2)
  1. PROPRANOLOL [Suspect]
     Dosage: 1600 MG, SINGLE, ORAL
     Route: 048
     Dates: start: 20060101, end: 20060101
  2. HYDROCHLORIC ACID (HYDROCHLORIC ACID) [Concomitant]

REACTIONS (3)
  - CARDIAC ARREST [None]
  - INTENTIONAL OVERDOSE [None]
  - SUICIDE ATTEMPT [None]
